FAERS Safety Report 8144964-1 (Version None)
Quarter: 2012Q1

REPORT INFORMATION
  Report Type: 
  Country: None (occurrence: None)
  Receive Date: 20120217
  Receipt Date: 20120213
  Transmission Date: 20120608
  Serious: Yes (Death, Hospitalization)
  Sender: FDA-Public Use
  Company Number: AU-MERCK-1112USA02512

PATIENT
  Age: 76 Year
  Sex: Female

DRUGS (3)
  1. METFORMIN HYDROCHLORIDE [Concomitant]
     Route: 065
  2. JANUVIA [Suspect]
     Route: 048
  3. JANUVIA [Suspect]
     Indication: DIABETES MELLITUS
     Route: 048

REACTIONS (3)
  - HEPATITIS [None]
  - PANCREATITIS [None]
  - JAUNDICE CHOLESTATIC [None]
